FAERS Safety Report 9365326 (Version 1)
Quarter: 2013Q2

REPORT INFORMATION
  Report Type: Spontaneous
  Country: US (occurrence: US)
  Receive Date: 20130625
  Receipt Date: 20130625
  Transmission Date: 20140414
  Serious: Yes (Other)
  Sender: FDA-Public Use
  Company Number: PHHY2013US064168

PATIENT
  Age: 38 Year
  Sex: Male

DRUGS (16)
  1. ACETYLSALICYLIC ACID [Suspect]
     Dosage: 20 MG, UNK
  2. ACETYLSALICYLIC ACID [Suspect]
     Dosage: 40 MG, UNK
  3. ACETYLSALICYLIC ACID [Suspect]
     Dosage: 81 MG, UNK
  4. ACETYLSALICYLIC ACID [Suspect]
     Dosage: 81 MG, UNK
  5. IBUPROFEN [Suspect]
     Dosage: 50 MG, UNK
  6. IBUPROFEN [Suspect]
     Dosage: 50 MG, UNK
  7. IBUPROFEN [Suspect]
     Dosage: 100 MG, UNK
  8. IBUPROFEN [Suspect]
     Dosage: 200 MG, UNK
  9. IBUPROFEN [Suspect]
     Dosage: 200 MG, BID
  10. LORATADINE [Concomitant]
     Dosage: 10 MG, UNK
  11. MONTELUKAST [Concomitant]
     Dosage: 10 MG, UNK
  12. FLUTICASONE PROPIONATE W/SALMETEROL [Concomitant]
     Dosage: 1 DF, UNK
  13. OLOPATADINE [Concomitant]
     Dosage: 65 UG, BID
  14. MOMETASONE FUROATE [Concomitant]
     Dosage: 50 UG, BID
  15. ALBUTEROL [Concomitant]
     Dosage: 2 DF, Q4H PRN
  16. AMLODIPINE [Concomitant]
     Dosage: 10 MG, UNK

REACTIONS (6)
  - Hypersensitivity [Recovered/Resolved]
  - Urticaria [Recovered/Resolved]
  - Throat irritation [Recovered/Resolved]
  - Chest discomfort [Recovered/Resolved]
  - Pruritus [Recovered/Resolved]
  - Skin discomfort [Recovered/Resolved]
